FAERS Safety Report 6213677-5 (Version None)
Quarter: 2009Q2

REPORT INFORMATION
  Report Type: 
  Country: None (occurrence: None)
  Receive Date: 20090603
  Receipt Date: 20090527
  Transmission Date: 20091009
  Serious: Yes (Hospitalization)
  Sender: FDA-Public Use
  Company Number: CH-WATSON-2009-03829

PATIENT
  Age: 41 Year
  Sex: Female

DRUGS (3)
  1. CHLOROQUINE (WATSON LABORATORIES) [Suspect]
     Indication: ROSACEA
     Dosage: 250 MG, DAILY
  2. ESTRADIOL [Concomitant]
     Indication: HORMONE REPLACEMENT THERAPY
     Dosage: UNK
  3. NORETHISTERON                      /00044902/ [Concomitant]
     Indication: HORMONE REPLACEMENT THERAPY
     Dosage: UNK

REACTIONS (2)
  - ACUTE RESPIRATORY FAILURE [None]
  - PNEUMONITIS [None]
